FAERS Safety Report 7381043-5 (Version None)
Quarter: 2011Q1

REPORT INFORMATION
  Report Type: 
  Country: None (occurrence: None)
  Receive Date: 20110329
  Receipt Date: 20100413
  Transmission Date: 20110831
  Serious: No
  Sender: FDA-Public Use
  Company Number: US-AMGEN-KDL405817

PATIENT
  Sex: Female

DRUGS (11)
  1. EPOGEN [Suspect]
     Indication: DIALYSIS
     Dosage: UNK UNK, UNK
  2. METOPROLOL TARTRATE [Concomitant]
     Dosage: UNK UNK, UNK
  3. PROCHLORPERAZINE EDISYLATE [Concomitant]
     Dosage: UNK UNK, UNK
  4. LEVOTHYROXINE SODIUM [Concomitant]
     Dosage: UNK UNK, UNK
  5. SEVELAMER [Concomitant]
     Dosage: UNK UNK, UNK
  6. NIFEDIPINE [Concomitant]
     Dosage: UNK UNK, UNK
  7. VENOFER [Concomitant]
     Dosage: UNK UNK, UNK
  8. ATORVASTATIN CALCIUM [Concomitant]
     Dosage: UNK UNK, UNK
  9. PARICALCITOL [Concomitant]
     Dosage: UNK UNK, UNK
  10. SENSIPAR [Suspect]
     Indication: HYPERPARATHYROIDISM SECONDARY
     Dosage: 30 MG, QD
  11. LANSOPRAZOLE [Concomitant]
     Dosage: UNK UNK, UNK

REACTIONS (2)
  - OEDEMA PERIPHERAL [None]
  - RASH PRURITIC [None]
